FAERS Safety Report 8076356-8 (Version None)
Quarter: 2012Q1

REPORT INFORMATION
  Report Type: 
  Country: None (occurrence: None)
  Receive Date: 20120127
  Receipt Date: 20120116
  Transmission Date: 20120608
  Serious: Yes (Hospitalization)
  Sender: FDA-Public Use
  Company Number: US-UCBSA-049969

PATIENT
  Age: 69 Year
  Sex: Female
  Weight: 53.07 kg

DRUGS (3)
  1. CIMZIA [Suspect]
     Indication: CROHN'S DISEASE
     Route: 058
     Dates: start: 20090114
  2. MERCAPTOPURINE [Concomitant]
     Indication: CROHN'S DISEASE
     Dates: start: 20070101, end: 20080101
  3. MERCAPTOPURINE [Concomitant]
     Dates: start: 20110413

REACTIONS (1)
  - CLOSTRIDIAL INFECTION [None]
